FAERS Safety Report 7679117-4 (Version None)
Quarter: 2011Q3

REPORT INFORMATION
  Report Type: 
  Country: None (occurrence: None)
  Receive Date: 20110812
  Receipt Date: 20110606
  Transmission Date: 20111222
  Serious: No
  Sender: FDA-Public Use
  Company Number: US-BAYER-2011-048457

PATIENT
  Age: 41 Year
  Sex: Female

DRUGS (3)
  1. SYNTHROID [Concomitant]
  2. CIPROFLOXACIN [Suspect]
     Indication: SINUSITIS
     Dosage: UNK
     Route: 048
     Dates: start: 20110527, end: 20110601
  3. IBUPROFEN [Concomitant]

REACTIONS (2)
  - ARTHRALGIA [None]
  - SWELLING [None]
